FAERS Safety Report 8181757-3 (Version None)
Quarter: 2012Q1

REPORT INFORMATION
  Report Type: 
  Country: None (occurrence: None)
  Receive Date: 20120302
  Receipt Date: 20110920
  Transmission Date: 20120608
  Serious: No
  Sender: FDA-Public Use
  Company Number: US-AMGEN-USASP2011048670

PATIENT
  Sex: Female

DRUGS (1)
  1. NPLATE [Suspect]
     Indication: IDIOPATHIC THROMBOCYTOPENIC PURPURA
     Dosage: 100 MUG, QWK
     Dates: start: 20100501

REACTIONS (8)
  - MYALGIA [None]
  - HEADACHE [None]
  - FATIGUE [None]
  - PARAESTHESIA [None]
  - DYSPEPSIA [None]
  - INSOMNIA [None]
  - HYPOAESTHESIA [None]
  - ARTHRALGIA [None]
